FAERS Safety Report 10692529 (Version 1)
Quarter: 2015Q1

REPORT INFORMATION
  Report Type: Spontaneous
  Country: US (occurrence: US)
  Receive Date: 20150106
  Receipt Date: 20150106
  Transmission Date: 20150720
  Serious: No
  Sender: FDA-Public Use
  Company Number: US-PFIZER INC-2014363094

PATIENT
  Age: 71 Year
  Sex: Female

DRUGS (1)
  1. SPIRONOLACTONE. [Suspect]
     Active Substance: SPIRONOLACTONE
     Dosage: 50 MG, UNK
     Dates: start: 20140911

REACTIONS (8)
  - Oesophageal pain [Unknown]
  - Gastrooesophageal reflux disease [Unknown]
  - Throat irritation [Unknown]
  - Abdominal pain [Unknown]
  - Dyspepsia [Unknown]
  - Laryngitis [Unknown]
  - Product quality issue [Unknown]
  - Nausea [Unknown]

NARRATIVE: CASE EVENT DATE: 2014
